FAERS Safety Report 9177091 (Version 1)
Quarter: 2013Q1

REPORT INFORMATION
  Report Type: Spontaneous
  Country: NL (occurrence: NL)
  Receive Date: 20130321
  Receipt Date: 20130321
  Transmission Date: 20140127
  Serious: Yes (Hospitalization, Other)
  Sender: FDA-Public Use
  Company Number: NL-ASTRAZENECA-2013SE16665

PATIENT
  Age: 76 Year
  Sex: Male
  Weight: 70 kg

DRUGS (5)
  1. BRILIQUE [Suspect]
     Indication: ACUTE MYOCARDIAL INFARCTION
     Route: 048
     Dates: start: 20130215, end: 20130222
  2. SINTROM [Interacting]
     Indication: ATRIAL FIBRILLATION
     Route: 048
     Dates: start: 20130222
  3. SINTROM [Interacting]
     Indication: ACUTE MYOCARDIAL INFARCTION
     Route: 048
     Dates: start: 20130222
  4. ASCAL CARDIO [Interacting]
     Indication: TRANSIENT ISCHAEMIC ATTACK
     Route: 048
     Dates: start: 2006, end: 20130222
  5. ASCAL CARDIO [Interacting]
     Indication: ACUTE MYOCARDIAL INFARCTION
     Route: 048
     Dates: start: 2006, end: 20130222

REACTIONS (2)
  - Drug interaction [Unknown]
  - Subdural haematoma [Recovering/Resolving]
